FAERS Safety Report 6017354-5 (Version None)
Quarter: 2008Q4

REPORT INFORMATION
  Report Type: 
  Country: None (occurrence: None)
  Receive Date: 20081223
  Receipt Date: 20081215
  Transmission Date: 20090506
  Serious: Yes (Death)
  Sender: FDA-Public Use
  Company Number: US-TYCO HEALTHCARE/MALLINCKRODT-T200802085

PATIENT
  Sex: Male

DRUGS (12)
  1. MORPHINE [Suspect]
  2. OXYCODONE HCL [Suspect]
  3. ALPRAZOLAM [Suspect]
  4. PLACEBO [Suspect]
  5. BMS 650032 [Suspect]
  6. CHANTIX [Concomitant]
  7. PROTONIC [Concomitant]
  8. PERCOCET [Concomitant]
  9. XANAX [Concomitant]
  10. LEXAPRO [Concomitant]
  11. PRILOSEC [Concomitant]
  12. ATENOLOL [Concomitant]

REACTIONS (2)
  - AMYOTROPHIC LATERAL SCLEROSIS [None]
  - DRUG TOXICITY [None]
